FAERS Safety Report 7764858-0 (Version None)
Quarter: 2011Q3

REPORT INFORMATION
  Report Type: 
  Country: None (occurrence: None)
  Receive Date: 20110921
  Receipt Date: 20110916
  Transmission Date: 20111222
  Serious: Yes (Hospitalization, Other)
  Sender: FDA-Public Use
  Company Number: ES-ROCHE-250044

PATIENT
  Age: 67 Year
  Sex: Female

DRUGS (6)
  1. TICLID [Suspect]
     Indication: MYOCARDIAL INFARCTION
     Route: 048
     Dates: start: 20000801
  2. GLYBURIDE [Interacting]
     Indication: DIABETES MELLITUS
     Route: 048
     Dates: start: 20000801, end: 20000912
  3. BISOPROLOL FUMARATE [Interacting]
     Indication: MYOCARDIAL INFARCTION
     Route: 048
     Dates: start: 20000801
  4. SIMVASTATIN [Interacting]
     Indication: MYOCARDIAL INFARCTION
     Route: 048
     Dates: start: 20000801
  5. INOCAR [Interacting]
     Indication: MYOCARDIAL INFARCTION
     Route: 048
     Dates: start: 20000801
  6. ASPIRIN [Interacting]
     Route: 048
     Dates: start: 20000801

REACTIONS (2)
  - DRUG INTERACTION [None]
  - HYPOGLYCAEMIA [None]
